APPROVED DRUG PRODUCT: FML-S
Active Ingredient: FLUOROMETHOLONE; SULFACETAMIDE SODIUM
Strength: 0.1%;10%
Dosage Form/Route: SUSPENSION/DROPS;OPHTHALMIC
Application: N019525 | Product #001
Applicant: ALLERGAN PHARMACEUTICAL
Approved: Sep 29, 1989 | RLD: No | RS: No | Type: DISCN